FAERS Safety Report 23441131 (Version 2)
Quarter: 2024Q1

REPORT INFORMATION
  Report Type: Spontaneous
  Country: DE (occurrence: DE)
  Receive Date: 20240125
  Receipt Date: 20240220
  Transmission Date: 20240409
  Serious: Yes (Other)
  Sender: FDA-Public Use
  Company Number: DE-Medice Arzneimittel-KinecteenSPO29071

PATIENT
  Age: 13 Year
  Sex: Male
  Weight: 43.4 kg

DRUGS (1)
  1. METHYLPHENIDATE [Suspect]
     Active Substance: METHYLPHENIDATE
     Indication: Attention deficit hyperactivity disorder
     Dosage: 1-0-0
     Route: 065
     Dates: start: 20230418, end: 20231221

REACTIONS (5)
  - Leukopenia [Not Recovered/Not Resolved]
  - Tonsillitis [Unknown]
  - Granulocytopenia [Unknown]
  - Somnolence [Recovering/Resolving]
  - Asthenia [Recovering/Resolving]

NARRATIVE: CASE EVENT DATE: 20231101
